FAERS Safety Report 5393581-5 (Version None)
Quarter: 2007Q3

REPORT INFORMATION
  Report Type: 
  Country: None (occurrence: None)
  Receive Date: 20070723
  Receipt Date: 20060908
  Transmission Date: 20080115
  Serious: Yes (Other)
  Sender: FDA-Public Use
  Company Number: A0619560A

PATIENT

DRUGS (2)
  1. AVANDIA [Suspect]
     Route: 048
  2. UNKNOWN [Concomitant]

REACTIONS (1)
  - HEPATIC ENZYME INCREASED [None]
